FAERS Safety Report 5484676-6 (Version None)
Quarter: 2007Q4

REPORT INFORMATION
  Report Type: 
  Country: None (occurrence: None)
  Receive Date: 20071012
  Receipt Date: 20071005
  Transmission Date: 20080405
  Serious: Yes (Hospitalization)
  Sender: FDA-Public Use
  Company Number: IN-PFIZER INC-2007084279

PATIENT
  Age: 45 Year
  Sex: Male

DRUGS (2)
  1. VIAGRA [Suspect]
     Indication: ERECTILE DYSFUNCTION
     Route: 048
  2. METOPROLOL [Concomitant]
     Route: 048

REACTIONS (6)
  - DIZZINESS [None]
  - FLUSHING [None]
  - HEADACHE [None]
  - HYPERTENSION [None]
  - PSYCHOTIC DISORDER [None]
  - VISION BLURRED [None]
